FAERS Safety Report 5242020-3 (Version None)
Quarter: 2007Q1

REPORT INFORMATION
  Report Type: 
  Country: None (occurrence: None)
  Receive Date: 20070220
  Receipt Date: 20070209
  Transmission Date: 20070707
  Serious: Yes (Other)
  Sender: FDA-Public Use
  Company Number: US-PFIZER INC-2006136205

PATIENT
  Sex: Female
  Weight: 86.2 kg

DRUGS (3)
  1. LYRICA [Suspect]
     Indication: NEUROPATHY
     Route: 048
     Dates: start: 20060801, end: 20060830
  2. LYRICA [Suspect]
     Indication: PAIN
  3. NORTRIPTYLINE HCL [Concomitant]
     Indication: PAIN
     Route: 048
     Dates: start: 20060701, end: 20060801

REACTIONS (6)
  - DISTURBANCE IN ATTENTION [None]
  - DYSURIA [None]
  - FEELING ABNORMAL [None]
  - MENTAL DISORDER [None]
  - MENTAL IMPAIRMENT [None]
  - UNEVALUABLE EVENT [None]
